FAERS Safety Report 8477967-8 (Version None)
Quarter: 2012Q2

REPORT INFORMATION
  Report Type: 
  Country: None (occurrence: None)
  Receive Date: 20120629
  Receipt Date: 20120618
  Transmission Date: 20120825
  Serious: Yes (Other)
  Sender: FDA-Public Use
  Company Number: US-MYLANLABS-2012S1012279

PATIENT
  Age: 69 Year
  Sex: Female

DRUGS (3)
  1. AMBIEN [Concomitant]
     Indication: INSOMNIA
     Route: 048
  2. CARVEDILOL [Suspect]
     Indication: BLOOD PRESSURE INCREASED
     Route: 048
     Dates: start: 20120501
  3. DIOVAN [Suspect]
     Indication: BLOOD PRESSURE INCREASED
     Route: 048
     Dates: start: 20120517

REACTIONS (2)
  - GASTRITIS [None]
  - SOMNOLENCE [None]
